FAERS Safety Report 18163470 (Version 1)
Quarter: 2020Q3

REPORT INFORMATION
  Report Type: Spontaneous
  Country: ES (occurrence: ES)
  Receive Date: 20200818
  Receipt Date: 20200818
  Transmission Date: 20201103
  Serious: Yes (Death, Hospitalization, Other)
  Sender: FDA-Public Use
  Company Number: ES-MICRO LABS LIMITED-ML2020-02368

PATIENT
  Age: 41 Year
  Sex: Male

DRUGS (3)
  1. VENLAFAXINE [Suspect]
     Active Substance: VENLAFAXINE HYDROCHLORIDE
     Indication: ADJUSTMENT DISORDER WITH DEPRESSED MOOD
  2. TRAMADOL/PARACETAMOL [Suspect]
     Active Substance: ACETAMINOPHEN\TRAMADOL
     Indication: SPINAL OSTEOARTHRITIS
     Dosage: 37.5/325 MG. DURING THE PAST 2 YEARS HE HAD TAKEN BETWEEN 6 AND 12 TABLETS/DAY
  3. DIAZEPAM. [Suspect]
     Active Substance: DIAZEPAM
     Dosage: TOOK OCCASIONALLY AT NIGHT

REACTIONS (8)
  - Fall [Fatal]
  - Toxicity to various agents [Fatal]
  - Overdose [Fatal]
  - Dizziness [Fatal]
  - Confusional state [Fatal]
  - Drug abuse [Fatal]
  - Sensory disturbance [Fatal]
  - Cognitive disorder [Fatal]
